FAERS Safety Report 13950929 (Version 1)
Quarter: 2017Q3

REPORT INFORMATION
  Report Type: Spontaneous
  Country: US (occurrence: US)
  Receive Date: 20170908
  Receipt Date: 20170908
  Transmission Date: 20171128
  Serious: Yes (Other)
  Sender: FDA-Public Use
  Company Number: US-ROCHE-1228889

PATIENT

DRUGS (2)
  1. RITUXAN [Suspect]
     Active Substance: RITUXIMAB
     Indication: PRODUCT USED FOR UNKNOWN INDICATION
     Route: 065
  2. BENDAMUSTINE [Concomitant]
     Active Substance: BENDAMUSTINE

REACTIONS (7)
  - Product quality issue [Unknown]
  - Hyperhidrosis [Unknown]
  - Asthenia [Unknown]
  - Feeling abnormal [Unknown]
  - Flushing [Unknown]
  - Hypotension [Unknown]
  - Nausea [Unknown]
